FAERS Safety Report 17550973 (Version 1)
Quarter: 2020Q1

REPORT INFORMATION
  Report Type: Spontaneous
  Country: US (occurrence: US)
  Receive Date: 20200309
  Receipt Date: 20200309
  Transmission Date: 20200409
  Serious: Yes (Hospitalization)
  Sender: FDA-Public Use
  Company Number: None

PATIENT
  Sex: Female

DRUGS (1)
  1. HUMIRA [Suspect]
     Active Substance: ADALIMUMAB
     Indication: CHORIORETINAL DISORDER
     Dosage: ?          OTHER STRENGTH:40MG/0.4ML;?
     Route: 058
     Dates: start: 201811

REACTIONS (1)
  - Abdominal discomfort [None]
